FAERS Safety Report 6817101-0 (Version None)
Quarter: 2010Q3

REPORT INFORMATION
  Report Type: 
  Country: None (occurrence: None)
  Receive Date: 20100706
  Receipt Date: 20100622
  Transmission Date: 20110219
  Serious: Yes (Other)
  Sender: FDA-Public Use
  Company Number: US-GENZYME-CLOF-1001014

PATIENT
  Sex: Female

DRUGS (3)
  1. CLOLAR [Suspect]
     Indication: ACUTE MYELOID LEUKAEMIA
     Dosage: UNK
  2. CLOLAR [Suspect]
     Dosage: UNK
  3. CLOLAR [Suspect]
     Dosage: UNK UNK, QDX5
     Route: 042
     Dates: start: 20100401, end: 20100401

REACTIONS (1)
  - CARDIOMYOPATHY [None]
